APPROVED DRUG PRODUCT: RANOLAZINE
Active Ingredient: RANOLAZINE
Strength: 500MG
Dosage Form/Route: TABLET, EXTENDED RELEASE;ORAL
Application: A213085 | Product #001
Applicant: PIRAMAL HEALTHCARE UK LTD
Approved: Jul 25, 2023 | RLD: No | RS: No | Type: DISCN